FAERS Safety Report 21184399 (Version 2)
Quarter: 2022Q3

REPORT INFORMATION
  Report Type: Spontaneous
  Country: US (occurrence: US)
  Receive Date: 20220808
  Receipt Date: 20220816
  Transmission Date: 20221026
  Serious: Yes (Hospitalization, Other)
  Sender: FDA-Public Use
  Company Number: US-SANOFI-01219554

PATIENT
  Sex: Female

DRUGS (1)
  1. ASPERCREME WITH LIDOCAINE [Suspect]
     Active Substance: LIDOCAINE
     Dosage: UNK

REACTIONS (19)
  - Myalgia [Unknown]
  - Confusional state [Unknown]
  - Agitation [Recovering/Resolving]
  - Restlessness [Unknown]
  - Vision blurred [Unknown]
  - Feeling hot [Unknown]
  - Headache [Recovering/Resolving]
  - Hallucination [Recovering/Resolving]
  - Paraesthesia [Recovering/Resolving]
  - Nausea [Recovering/Resolving]
  - Ocular hyperaemia [Unknown]
  - Eye irritation [Unknown]
  - Eye inflammation [Unknown]
  - Obesity [Recovering/Resolving]
  - Muscle twitching [Recovering/Resolving]
  - Renal disorder [Recovering/Resolving]
  - Nervous system disorder [Recovering/Resolving]
  - Product administration error [Unknown]
  - Overdose [Unknown]
